FAERS Safety Report 24603773 (Version 2)
Quarter: 2024Q4

REPORT INFORMATION
  Report Type: Report from Study
  Country: IT (occurrence: IT)
  Receive Date: 20241111
  Receipt Date: 20241129
  Transmission Date: 20250114
  Serious: Yes (Hospitalization)
  Sender: ALNYLAM PHARMACEUTICALS
  Company Number: IT-ALNYLAM PHARMACEUTICALS, INC.-ALN-2024-006132

PATIENT

DRUGS (9)
  1. ONPATTRO [Suspect]
     Active Substance: PATISIRAN SODIUM
     Indication: Hereditary neuropathic amyloidosis
     Dosage: 300 MICROGRAM/KILOGRAM (24 MG/12 ML), Q3W (EVERY 21 DAYS)
     Route: 065
     Dates: start: 202111, end: 202111
  2. ONPATTRO [Suspect]
     Active Substance: PATISIRAN SODIUM
     Dosage: 300 MICROGRAM/KILOGRAM (24 MG/12 ML), Q3W (EVERY 21 DAYS)
     Route: 065
     Dates: start: 20241011, end: 20241011
  3. TICLOPIDINE HYDROCHLORIDE [Concomitant]
     Active Substance: TICLOPIDINE HYDROCHLORIDE
     Indication: Antiplatelet therapy
     Dosage: 250 MILLIGRAM
     Route: 065
  4. AVODART [Concomitant]
     Active Substance: DUTASTERIDE
     Indication: Benign prostatic hyperplasia
     Dosage: 0.5 MILLIGRAM
     Route: 065
  5. CYMBALTA [Concomitant]
     Active Substance: DULOXETINE HYDROCHLORIDE
     Indication: Depression
     Dosage: 30 MILLIGRAM
     Route: 065
  6. DEXAMETHASONE [Concomitant]
     Active Substance: DEXAMETHASONE
     Indication: Premedication
     Dosage: 10 MILLIGRAM
     Route: 042
  7. ACETAMINOPHEN [Concomitant]
     Active Substance: ACETAMINOPHEN
     Indication: Premedication
     Dosage: 10 MILLIGRAM
     Route: 048
  8. DIPHENHYDRAMINE [Concomitant]
     Active Substance: DIPHENHYDRAMINE
     Indication: Premedication
     Dosage: 50 MILLIGRAM
     Route: 042
  9. FAMOTIDINE [Concomitant]
     Active Substance: FAMOTIDINE
     Indication: Premedication
     Dosage: 40 MILLIGRAM
     Route: 048

REACTIONS (12)
  - Pneumonia [Recovered/Resolved]
  - Syncope [Recovered/Resolved]
  - Loss of consciousness [Recovered/Resolved]
  - Respiratory failure [Unknown]
  - Cardiac failure [Unknown]
  - Pleural effusion [Unknown]
  - Hypoxic-ischaemic encephalopathy [Unknown]
  - Inappropriate schedule of product administration [Recovered/Resolved]
  - Left ventricular hypertrophy [Unknown]
  - Thyroid mass [Unknown]
  - Adrenal mass [Unknown]
  - Atrioventricular block first degree [Unknown]

NARRATIVE: CASE EVENT DATE: 20241101
